FAERS Safety Report 11823161 (Version 1)
Quarter: 2015Q4

REPORT INFORMATION
  Report Type: Spontaneous
  Country: US (occurrence: US)
  Receive Date: 20151210
  Receipt Date: 20151210
  Transmission Date: 20160305
  Serious: No
  Sender: FDA-Public Use
  Company Number: US-ACTELION PHARMACEUTICALS US, INC.-A-NJ2015-128295

PATIENT
  Age: 70 Year
  Sex: Female

DRUGS (6)
  1. LETROZOLE. [Concomitant]
     Active Substance: LETROZOLE
  2. LOSARTAN. [Concomitant]
     Active Substance: LOSARTAN
  3. GLYBURIDE. [Concomitant]
     Active Substance: GLYBURIDE
  4. ATENOLOL. [Concomitant]
     Active Substance: ATENOLOL
  5. METFORMIN [Concomitant]
     Active Substance: METFORMIN HYDROCHLORIDE
  6. VALCHLOR [Suspect]
     Active Substance: MECHLORETHAMINE
     Indication: MYCOSIS FUNGOIDES
     Dosage: UNK
     Route: 061
     Dates: start: 20151005

REACTIONS (4)
  - Erythema [Unknown]
  - Swelling [Unknown]
  - Skin hyperpigmentation [Unknown]
  - Pruritus [Unknown]
